FAERS Safety Report 10455570 (Version 1)
Quarter: 2014Q3

REPORT INFORMATION
  Report Type: Spontaneous
  Country: US (occurrence: None)
  Receive Date: 20140818
  Receipt Date: 20140818
  Transmission Date: 20150326
  Serious: Yes (Hospitalization)
  Sender: FDA-Public Use
  Company Number: 20111108VANCO2443

PATIENT
  Age: 57 Year
  Sex: Male

DRUGS (1)
  1. VANCOCIN [Suspect]
     Active Substance: VANCOMYCIN HYDROCHLORIDE
     Indication: CLOSTRIDIUM DIFFICILE INFECTION
     Route: 048
     Dates: start: 2010

REACTIONS (2)
  - Disease recurrence [None]
  - Clostridium difficile infection [None]

NARRATIVE: CASE EVENT DATE: 201009
